FAERS Safety Report 8965515 (Version 1)
Quarter: 2012Q4

REPORT INFORMATION
  Report Type: Spontaneous
  Country: US (occurrence: None)
  Receive Date: 20121212
  Receipt Date: 20121212
  Transmission Date: 20130627
  Serious: Yes (Other)
  Sender: FDA-Public Use
  Company Number: None

PATIENT
  Age: 62 Year
  Sex: Female
  Weight: 77.11 kg

DRUGS (1)
  1. AMBIEN CR [Suspect]
     Indication: INSOMNIA
     Dates: start: 20121116, end: 20121205

REACTIONS (5)
  - Hypoaesthesia [None]
  - Burning sensation [None]
  - Burning sensation [None]
  - Burning sensation [None]
  - Oral discomfort [None]
